FAERS Safety Report 14720400 (Version 1)
Quarter: 2018Q1

REPORT INFORMATION
  Report Type: Spontaneous
  Country: US (occurrence: US)
  Receive Date: 20180330
  Receipt Date: 20180330
  Transmission Date: 20180509
  Serious: No
  Sender: FDA-Public Use
  Company Number: None

PATIENT
  Age: 63 Year
  Sex: Female

DRUGS (1)
  1. CAPECITABINE 500MG WEST-WARD [Suspect]
     Active Substance: CAPECITABINE
     Indication: GALLBLADDER CANCER
     Dosage: 2000MG BID FOR 2 WEEKS PO
     Route: 048
     Dates: start: 20180213, end: 20180327

REACTIONS (6)
  - Skin exfoliation [None]
  - Erythema [None]
  - Skin discolouration [None]
  - Skin reaction [None]
  - Skin swelling [None]
  - Blister [None]

NARRATIVE: CASE EVENT DATE: 20180327
